FAERS Safety Report 13197563 (Version 7)
Quarter: 2018Q4

REPORT INFORMATION
  Report Type: Spontaneous
  Country: US (occurrence: US)
  Receive Date: 20170208
  Receipt Date: 20181119
  Transmission Date: 20190204
  Serious: Yes (Disabling, Other)
  Sender: FDA-Public Use
  Company Number: US-PFIZER INC-2017056059

PATIENT
  Age: 62 Year
  Sex: Female

DRUGS (13)
  1. ASA [Concomitant]
     Active Substance: ASPIRIN
     Indication: ESSENTIAL HYPERTENSION
     Dosage: 1 DF, 1X/DAY
     Route: 048
  2. CITALOPRAM HYDROBROMIDE. [Concomitant]
     Active Substance: CITALOPRAM HYDROBROMIDE
     Indication: ANXIETY
     Dosage: 1 DF, 1X/DAY
     Route: 048
  3. ARICEPT [Concomitant]
     Active Substance: DONEPEZIL HYDROCHLORIDE
     Indication: DEMENTIA
     Dosage: 1 DF, 1X/DAY
     Route: 048
  4. ZOCOR [Concomitant]
     Active Substance: SIMVASTATIN
     Indication: TYPE V HYPERLIPIDAEMIA
     Dosage: 1 DF, 1X/DAY (ONCE A DAY, AT BEDTIME)
     Route: 048
  5. ASA [Concomitant]
     Active Substance: ASPIRIN
     Indication: CORONARY ARTERY DISEASE
  6. OMEPRAZOLE. [Concomitant]
     Active Substance: OMEPRAZOLE
     Indication: GASTROOESOPHAGEAL REFLUX DISEASE
     Dosage: 1 DF, 1X/DAY
     Route: 048
  7. MEMANTINE. [Concomitant]
     Active Substance: MEMANTINE
     Indication: DEMENTIA
     Dosage: 1 DF, 2X/DAY
  8. DILANTIN [Suspect]
     Active Substance: PHENYTOIN
     Indication: EPILEPSY
     Dosage: UNK
     Route: 048
  9. LOSARTAN. [Concomitant]
     Active Substance: LOSARTAN
     Indication: ESSENTIAL HYPERTENSION
     Dosage: 1 DF, 1X/DAY
     Route: 048
  10. MYSOLINE [Concomitant]
     Active Substance: PRIMIDONE
     Indication: EPILEPSY
     Dosage: UNK
  11. PHENOBARBITAL. [Concomitant]
     Active Substance: PHENOBARBITAL
     Indication: EPILEPSY
     Dosage: UNK
  12. ZOFRAN [Concomitant]
     Active Substance: ONDANSETRON HYDROCHLORIDE
     Indication: GASTROOESOPHAGEAL REFLUX DISEASE
     Dosage: 1 DF, AS NEEDED (EVERY 8 HOURS, 30 DAYS)
     Route: 048
  13. ASPIRIN EC [Concomitant]
     Active Substance: ASPIRIN
     Dosage: 81 MG, 1X/DAY
     Route: 048

REACTIONS (4)
  - Neuropathy peripheral [Not Recovered/Not Resolved]
  - Cerebellar atrophy [Not Recovered/Not Resolved]
  - Ataxia [Not Recovered/Not Resolved]
  - Cerebral atrophy [Unknown]

NARRATIVE: CASE EVENT DATE: 20160822
